FAERS Safety Report 5113459-1 (Version None)
Quarter: 2006Q3

REPORT INFORMATION
  Report Type: 
  Country: None (occurrence: None)
  Receive Date: 20060920
  Receipt Date: 20060907
  Transmission Date: 20061208
  Serious: Yes (Hospitalization)
  Sender: FDA-Public Use
  Company Number: HQWYE476108SEP06

PATIENT
  Age: 33 Year
  Sex: Male

DRUGS (16)
  1. RAPAMUNE [Suspect]
     Indication: IMMUNOSUPPRESSANT DRUG THERAPY
     Dosage: SEE IMAGE
     Route: 048
     Dates: start: 20060522, end: 20060607
  2. RAPAMUNE [Suspect]
     Indication: PROPHYLAXIS AGAINST TRANSPLANT REJECTION
     Dosage: SEE IMAGE
     Route: 048
     Dates: start: 20060522, end: 20060607
  3. RAPAMUNE [Suspect]
     Indication: IMMUNOSUPPRESSANT DRUG THERAPY
     Dosage: SEE IMAGE
     Route: 048
     Dates: start: 20060608, end: 20060608
  4. RAPAMUNE [Suspect]
     Indication: PROPHYLAXIS AGAINST TRANSPLANT REJECTION
     Dosage: SEE IMAGE
     Route: 048
     Dates: start: 20060608, end: 20060608
  5. RAPAMUNE [Suspect]
     Indication: IMMUNOSUPPRESSANT DRUG THERAPY
     Dosage: SEE IMAGE
     Route: 048
     Dates: start: 20060609, end: 20060622
  6. RAPAMUNE [Suspect]
     Indication: PROPHYLAXIS AGAINST TRANSPLANT REJECTION
     Dosage: SEE IMAGE
     Route: 048
     Dates: start: 20060609, end: 20060622
  7. RAPAMUNE [Suspect]
     Indication: IMMUNOSUPPRESSANT DRUG THERAPY
     Dosage: SEE IMAGE
     Route: 048
     Dates: start: 20060714
  8. RAPAMUNE [Suspect]
     Indication: PROPHYLAXIS AGAINST TRANSPLANT REJECTION
     Dosage: SEE IMAGE
     Route: 048
     Dates: start: 20060714
  9. MYCOPHENOLATE MOFETIL [Suspect]
     Indication: IMMUNOSUPPRESSANT DRUG THERAPY
     Dosage: 2 G 1X PER 1 DAY
     Route: 048
     Dates: start: 20060521
  10. PREDNISONE TAB [Suspect]
     Indication: IMMUNOSUPPRESSANT DRUG THERAPY
     Dosage: 15 MG 1X PER 1 DAY
     Route: 048
     Dates: start: 20060624
  11. DOXAZOSIN [Concomitant]
  12. AMLODIPINE [Concomitant]
  13. ATENOLOL [Concomitant]
  14. CO-TRIMAZOLE ^DAKOTA PHARM^ (SULFAMETHOXAZOLE/TRIMETHOPRIM) [Concomitant]
  15. OMEPRAZOLE [Concomitant]
  16. CALCITRIOL [Concomitant]

REACTIONS (6)
  - ABSCESS [None]
  - DIABETES MELLITUS [None]
  - DIARRHOEA [None]
  - DRY MOUTH [None]
  - FISTULA [None]
  - PROCTOCOLITIS [None]
